FAERS Safety Report 5779284-3 (Version None)
Quarter: 2008Q2

REPORT INFORMATION
  Report Type: 
  Country: None (occurrence: None)
  Receive Date: 20080619
  Receipt Date: 20080611
  Transmission Date: 20081010
  Serious: Yes (Death)
  Sender: FDA-Public Use
  Company Number: HQWYE039907MAY07

PATIENT
  Sex: Male

DRUGS (7)
  1. EFFEXOR XR [Suspect]
     Indication: DEPRESSION
  2. ACCUPRIL [Concomitant]
  3. LIPITOR [Concomitant]
  4. HYDROCHLOROTHIAZIDE [Concomitant]
  5. ZOLOFT [Suspect]
     Indication: DEPRESSION
  6. ZOLOFT [Suspect]
     Indication: ANXIETY
  7. AMBIEN [Concomitant]

REACTIONS (2)
  - AGGRESSION [None]
  - COMPLETED SUICIDE [None]
